FAERS Safety Report 22108144 (Version 1)
Quarter: 2023Q1

REPORT INFORMATION
  Report Type: Spontaneous
  Country: GB (occurrence: GB)
  Receive Date: 20230317
  Receipt Date: 20230317
  Transmission Date: 20230417
  Serious: Yes (Other)
  Sender: FDA-Public Use
  Company Number: None

PATIENT
  Age: 53 Year
  Sex: Female
  Weight: 72 kg

DRUGS (3)
  1. VENLAFAXINE [Suspect]
     Active Substance: VENLAFAXINE HYDROCHLORIDE
     Indication: Depression
     Dosage: HALF A TABLET AFTER FOOD
     Route: 065
     Dates: start: 20230305, end: 20230305
  2. LANREOTIDE [Concomitant]
     Active Substance: LANREOTIDE
     Indication: Neuroendocrine tumour
     Dosage: UNKNOWN
     Route: 065
     Dates: start: 20200820
  3. XARELTO [Concomitant]
     Active Substance: RIVAROXABAN
     Indication: Thrombosis
     Dosage: UNKNOWN
     Route: 065

REACTIONS (7)
  - Medication error [Unknown]
  - Loss of consciousness [Recovered/Resolved]
  - Syncope [Recovered/Resolved]
  - Palpitations [Unknown]
  - Pallor [Unknown]
  - Head banging [Unknown]
  - Fall [Unknown]

NARRATIVE: CASE EVENT DATE: 20230305
